FAERS Safety Report 19752797 (Version 2)
Quarter: 2021Q3

REPORT INFORMATION
  Report Type: Spontaneous
  Country: JP (occurrence: JP)
  Receive Date: 20210827
  Receipt Date: 20210910
  Transmission Date: 20211014
  Serious: Yes (Hospitalization)
  Sender: FDA-Public Use
  Company Number: JP-NOVOPROD-840542

PATIENT
  Age: 63 Year
  Sex: Female
  Weight: 49 kg

DRUGS (10)
  1. RYZODEG 70/30 [Suspect]
     Active Substance: INSULIN ASPART\INSULIN DEGLUDEC
     Indication: PRODUCT USED FOR UNKNOWN INDICATION
     Dosage: 8 CREDITS BEFORE DINNER
     Route: 058
     Dates: start: 20171010, end: 20210622
  2. INSULIN ASPART [Suspect]
     Active Substance: INSULIN ASPART
     Dosage: (12 U) 6 CREDITS BEFORE BREAKFAST AND 6 CREDITS BEFORE LUNCH
     Route: 058
     Dates: start: 20210626, end: 20210628
  3. INSULIN ASPART [Suspect]
     Active Substance: INSULIN ASPART
     Dosage: (7 U) 3 CREDITS BEFORE BREAKFAST AND 4 CREDITS BEFORE LUNCH
     Route: 058
     Dates: start: 20200916, end: 20210622
  4. INSULIN ASPART [Suspect]
     Active Substance: INSULIN ASPART
     Dosage: (9 U) 3 CREDITS BEFORE BREAKFAST AND 6 CREDITS BEFORE LUNCH
     Route: 058
     Dates: start: 20210623, end: 20210623
  5. RYZODEG 70/30 [Suspect]
     Active Substance: INSULIN ASPART\INSULIN DEGLUDEC
     Dosage: 10(+1) CREDITS BEFORE DINNER
     Route: 058
     Dates: start: 20210625
  6. RYZODEG 70/30 [Suspect]
     Active Substance: INSULIN ASPART\INSULIN DEGLUDEC
     Dosage: 9(+1) CREDITS BEFORE DINNER
     Route: 058
     Dates: start: 20210623, end: 20210624
  7. INSULIN ASPART [Suspect]
     Active Substance: INSULIN ASPART
     Dosage: 10U
     Route: 058
     Dates: start: 20210629
  8. INSULIN ASPART [Suspect]
     Active Substance: INSULIN ASPART
     Dosage: (10 U) 4 CREDITS BEFORE BREAKFAST AND 6 CREDITS BEFORE LUNCH
     Route: 058
     Dates: start: 20210624, end: 20210625
  9. INSULIN ASPART [Suspect]
     Active Substance: INSULIN ASPART
     Indication: PRODUCT USED FOR UNKNOWN INDICATION
     Dosage: 5 U
     Route: 058
     Dates: start: 20191212, end: 20200914
  10. INSULIN ASPART [Suspect]
     Active Substance: INSULIN ASPART
     Dosage: (10 U) 4 CREDITS BEFORE BREAKFAST AND 6 CREDITS BEFORE LUNCH
     Route: 058
     Dates: start: 20210628, end: 20210628

REACTIONS (3)
  - Hyperkalaemia [Recovered/Resolved]
  - Diabetes mellitus [Not Recovered/Not Resolved]
  - Condition aggravated [Recovered/Resolved]

NARRATIVE: CASE EVENT DATE: 20210316
